FAERS Safety Report 6573452-9 (Version None)
Quarter: 2010Q1

REPORT INFORMATION
  Report Type: 
  Country: None (occurrence: None)
  Receive Date: 20100208
  Receipt Date: 20100128
  Transmission Date: 20100710
  Serious: No
  Sender: FDA-Public Use
  Company Number: US-B.I. PHARMACEUTICALS,INC./RIDGEFIELD-2010-BP-00487BP

PATIENT
  Sex: Female

DRUGS (2)
  1. TWYNSTA [Suspect]
  2. ACTOS [Suspect]
     Dosage: 45 MG

REACTIONS (1)
  - OEDEMA PERIPHERAL [None]
